FAERS Safety Report 8263816-X (Version None)
Quarter: 2012Q2

REPORT INFORMATION
  Report Type: 
  Country: None (occurrence: None)
  Receive Date: 20120405
  Receipt Date: 20120327
  Transmission Date: 20120825
  Serious: Yes (Hospitalization)
  Sender: FDA-Public Use
  Company Number: FR-PFIZER INC-2012052740

PATIENT
  Sex: Male

DRUGS (8)
  1. PANTOPRAZOLE SODIUM [Suspect]
     Dosage: 40 MG, DAILY
     Route: 042
     Dates: start: 20120114, end: 20120120
  2. BACTRIM [Suspect]
     Dosage: 12 DOSAGE FORMS
     Route: 042
     Dates: start: 20120114, end: 20120115
  3. VENTOLIN [Concomitant]
  4. LESCOL [Concomitant]
  5. ROCEPHIN [Suspect]
     Dosage: 2 G
     Route: 042
     Dates: start: 20120114, end: 20120124
  6. ROVAMYCINE [Suspect]
     Dosage: 3500000 IU
     Route: 042
     Dates: start: 20120114, end: 20120124
  7. GAVISCON [Concomitant]
  8. AMLODIPINE BESYLATE AND OLMESARTAN MEDOXOMIL [Concomitant]

REACTIONS (4)
  - EOSINOPHILIA [None]
  - LUNG DISORDER [None]
  - RENAL FAILURE ACUTE [None]
  - THROMBOCYTOPENIA [None]
